FAERS Safety Report 4314504-3 (Version None)
Quarter: 2004Q1

REPORT INFORMATION
  Report Type: 
  Country: None (occurrence: None)
  Receive Date: 20040308
  Receipt Date: 20040227
  Transmission Date: 20041129
  Serious: Yes (Hospitalization)
  Sender: FDA-Public Use
  Company Number: US012767

PATIENT
  Age: 38 Year
  Sex: Male

DRUGS (5)
  1. PROVIGIL [Suspect]
     Indication: FATIGUE
     Dosage: 100 MG BID ORAL
     Route: 048
     Dates: start: 20031125, end: 20031204
  2. COMBIVIR [Concomitant]
  3. SUSTIVA [Concomitant]
  4. NORVASC [Concomitant]
  5. MONOPRIL [Concomitant]

REACTIONS (9)
  - ALANINE AMINOTRANSFERASE INCREASED [None]
  - ASPARTATE AMINOTRANSFERASE INCREASED [None]
  - BACK PAIN [None]
  - CHILLS [None]
  - DRUG HYPERSENSITIVITY [None]
  - FLANK PAIN [None]
  - PALLOR [None]
  - PYREXIA [None]
  - RASH ERYTHEMATOUS [None]
